FAERS Safety Report 11860665 (Version 1)
Quarter: 2015Q4

REPORT INFORMATION
  Report Type: Spontaneous
  Country: US (occurrence: US)
  Receive Date: 20151222
  Receipt Date: 20151222
  Transmission Date: 20160305
  Serious: Yes (Hospitalization, Other)
  Sender: FDA-Public Use
  Company Number: US-SMITH AND NEPHEW, INC-2015SMT00639

PATIENT
  Age: 71 Year
  Sex: Male
  Weight: 90.7 kg

DRUGS (4)
  1. UNSPECIFIED HIGH CHOLETEROL MEDICATION(S) [Concomitant]
  2. REGRANEX [Suspect]
     Active Substance: BECAPLERMIN
     Indication: DIABETIC FOOT
     Dosage: UNK UNK, 1X/DAY
     Route: 061
     Dates: start: 20151026, end: 201511
  3. UNSPECIFIED HIGH BLOOD PRESSURE MEDICATION(S) [Concomitant]
     Dosage: UNK
  4. UNSPECIFIED DIABETES MEDICATION(S) [Concomitant]

REACTIONS (3)
  - Pulse absent [Not Recovered/Not Resolved]
  - Leg amputation [Recovered/Resolved with Sequelae]
  - Drug effect incomplete [Recovered/Resolved with Sequelae]

NARRATIVE: CASE EVENT DATE: 2015
